FAERS Safety Report 8873759 (Version 3)
Quarter: 2012Q4

REPORT INFORMATION
  Report Type: Report from Study
  Country: FR (occurrence: FR)
  Receive Date: 20121030
  Receipt Date: 20121213
  Transmission Date: 20130627
  Serious: Yes (Hospitalization)
  Sender: FDA-Public Use
  Company Number: FR-VERTEX PHARMACEUTICAL INC.-2012-020269

PATIENT
  Age: 52 Year
  Sex: Male
  Weight: 51.4 kg

DRUGS (11)
  1. VX-950 (TELAPREVIR) [Suspect]
     Indication: HEPATITIS C
     Dosage: 750 mg, tid
     Route: 048
     Dates: start: 20120307
  2. COPEGUS [Suspect]
     Indication: HEPATITIS C
     Dosage: Dosage Form: Capsule
     Route: 065
     Dates: start: 20120405
  3. COPEGUS [Suspect]
     Dosage: Dosage Form: Capsule
     Route: 065
     Dates: start: 20120307, end: 20120405
  4. COPEGUS [Suspect]
     Dosage: Dosage Form: Capsule
     Route: 065
     Dates: start: 20110209, end: 20120307
  5. PEGASYS [Suspect]
     Indication: HEPATITIS C
     Dosage: Dosage Form: Injection
     Route: 065
     Dates: start: 20120209
  6. TRUVADA [Suspect]
     Indication: HIV INFECTION
     Dosage: Dosage Form: Capsule
     Route: 065
     Dates: start: 20110121
  7. NORVIR [Suspect]
     Indication: HIV INFECTION
     Dosage: Dosage Form: Capsule
     Route: 065
     Dates: start: 20110121
  8. NEORECORMON [Concomitant]
     Indication: ANAEMIA
     Dosage: Dosage Form: Unknown, 30 000 on Tuesday and Friday
     Route: 065
     Dates: start: 20120307
  9. REYATAZ [Concomitant]
     Indication: HIV INFECTION
     Dosage: Dosage Form: Capsule
     Route: 065
     Dates: start: 20110121
  10. IMODIUM [Concomitant]
     Dosage: Dosage Form: Unspecified
     Route: 065
     Dates: start: 20120405, end: 20120504
  11. FERROGRAD [Concomitant]
     Indication: ANAEMIA
     Dosage: Dosage Form: Unknown
     Route: 065
     Dates: start: 20111220, end: 20120220

REACTIONS (3)
  - Atrioventricular block [Recovered/Resolved]
  - Presyncope [Recovered/Resolved]
  - Anaemia [Recovered/Resolved]
